FAERS Safety Report 20403808 (Version 2)
Quarter: 2022Q1

REPORT INFORMATION
  Report Type: Spontaneous
  Country: IN (occurrence: IN)
  Receive Date: 20220131
  Receipt Date: 20220210
  Transmission Date: 20220423
  Serious: Yes (Hospitalization)
  Sender: FDA-Public Use
  Company Number: IN-LUPIN PHARMACEUTICALS INC.-2022-01022

PATIENT
  Age: 38 Year
  Sex: Female

DRUGS (2)
  1. LAMIVUDINE AND ZIDOVUDINE [Suspect]
     Active Substance: LAMIVUDINE\ZIDOVUDINE
     Indication: Acquired immunodeficiency syndrome
     Dosage: UNK (ZLN 30)
     Route: 065
  2. NEVIRAPINE [Suspect]
     Active Substance: NEVIRAPINE
     Indication: Acquired immunodeficiency syndrome
     Dosage: UNK (ZLN 30)
     Route: 065

REACTIONS (2)
  - Gastritis [Unknown]
  - Anaemia [Unknown]
